FAERS Safety Report 8200395-7 (Version None)
Quarter: 2012Q1

REPORT INFORMATION
  Report Type: 
  Country: None (occurrence: None)
  Receive Date: 20120309
  Receipt Date: 20120309
  Transmission Date: 20120608
  Serious: Yes (Hospitalization)
  Sender: FDA-Public Use
  Company Number: None

PATIENT
  Age: 68 Year
  Sex: Male
  Weight: 60.6 kg

DRUGS (1)
  1. ALLOPURINOL [Suspect]
     Dosage: 200 MG EVERY DAY PO
     Route: 048
     Dates: end: 20120123

REACTIONS (5)
  - HEPATIC ENZYME INCREASED [None]
  - DIZZINESS [None]
  - PYREXIA [None]
  - RASH [None]
  - PRURITUS [None]
